FAERS Safety Report 5480715-7 (Version None)
Quarter: 2007Q4

REPORT INFORMATION
  Report Type: 
  Country: None (occurrence: None)
  Receive Date: 20071009
  Receipt Date: 20070928
  Transmission Date: 20080405
  Serious: Yes (Other)
  Sender: FDA-Public Use
  Company Number: US-SANOFI-SYNTHELABO-A01200711009

PATIENT
  Age: 89 Year
  Sex: Male

DRUGS (2)
  1. CHLOROQUINE PHOSPHATE [Suspect]
     Route: 048
  2. HYDROXYCHLOROQUINE SULFATE [Suspect]
     Indication: MORPHOEA
     Route: 048

REACTIONS (6)
  - DYSPHAGIA [None]
  - LUMBAR RADICULOPATHY [None]
  - MUSCULAR WEAKNESS [None]
  - MYOPATHY [None]
  - PNEUMONIA ASPIRATION [None]
  - WEIGHT DECREASED [None]
